FAERS Safety Report 9539026 (Version 1)
Quarter: 2013Q3

REPORT INFORMATION
  Report Type: Report from Study
  Country: CA (occurrence: CA)
  Receive Date: 20130920
  Receipt Date: 20130920
  Transmission Date: 20140515
  Serious: Yes (Other)
  Sender: FDA-Public Use
  Company Number: CA-JNJFOC-20130905981

PATIENT
  Sex: Female
  Weight: 92.53 kg

DRUGS (2)
  1. STELARA [Suspect]
     Indication: PSORIASIS
     Dosage: BEGAN APPROXIMATELY 2-3 YEARS AGO
     Route: 058
  2. VITAMIN D [Concomitant]
     Dosage: IN THE MORNING; APPROXIMATELY 3 MONTHS AGO
     Route: 065

REACTIONS (9)
  - Blindness [Unknown]
  - Blood glucose increased [Unknown]
  - Autoimmune disorder [Unknown]
  - Transfusion [Unknown]
  - Confusional state [Unknown]
  - Pain [Unknown]
  - Disturbance in attention [Unknown]
  - Fatigue [Unknown]
  - Nausea [Unknown]
